FAERS Safety Report 16146093 (Version 1)
Quarter: 2019Q2

REPORT INFORMATION
  Report Type: Spontaneous
  Country: TR (occurrence: TR)
  Receive Date: 20190402
  Receipt Date: 20190402
  Transmission Date: 20190711
  Serious: Yes (Hospitalization, Other)
  Sender: FDA-Public Use
  Company Number: TR-ACCORD-116051

PATIENT
  Age: 72 Year
  Sex: Male

DRUGS (1)
  1. CAPECITABINE. [Suspect]
     Active Substance: CAPECITABINE
     Indication: CHOLANGIOCARCINOMA
     Dates: start: 2015

REACTIONS (7)
  - Phagocytosis [Recovered/Resolved]
  - Scleroderma [Recovered/Resolved]
  - Ectropion [Recovered/Resolved]
  - Eyelid retraction [Recovered/Resolved]
  - Corneal erosion [Recovered/Resolved]
  - Skin hyperpigmentation [Recovered/Resolved]
  - Interstitial granulomatous dermatitis [Recovered/Resolved]
